FAERS Safety Report 22206875 (Version 1)
Quarter: 2023Q2

REPORT INFORMATION
  Report Type: Report from Study
  Country: DE (occurrence: DE)
  Receive Date: 20230413
  Receipt Date: 20230413
  Transmission Date: 20230722
  Serious: Yes (Hospitalization)
  Sender: FDA-Public Use
  Company Number: DE-ELI_LILLY_AND_COMPANY-DE202304002555

PATIENT
  Age: 84 Year
  Sex: Female

DRUGS (1)
  1. TERIPARATIDE [Suspect]
     Active Substance: TERIPARATIDE
     Indication: Osteoporosis
     Dosage: UNK UNK, DAILY
     Route: 058
     Dates: start: 20230119

REACTIONS (3)
  - Peripheral swelling [Unknown]
  - Blood pressure decreased [Unknown]
  - Heart rate increased [Unknown]
